FAERS Safety Report 12906364 (Version 3)
Quarter: 2016Q4

REPORT INFORMATION
  Report Type: Spontaneous
  Country: US (occurrence: US)
  Receive Date: 20161103
  Receipt Date: 20161227
  Transmission Date: 20170207
  Serious: No
  Sender: FDA-Public Use
  Company Number: US-PFIZER INC-2016508386

PATIENT
  Age: 64 Year
  Sex: Male

DRUGS (4)
  1. SUTENT [Suspect]
     Active Substance: SUNITINIB MALATE
     Indication: RENAL CELL CARCINOMA
     Dosage: 50 MG, CYCLIC (28 DAYS ON/14 DAYS OFF)
     Dates: start: 20160924, end: 20161021
  2. LEVOTHYROXINE. [Concomitant]
     Active Substance: LEVOTHYROXINE
     Indication: THYROID DISORDER
     Dosage: 50 UG, UNK
     Dates: start: 2003
  3. SUTENT [Suspect]
     Active Substance: SUNITINIB MALATE
     Dosage: 50 MG, CYCLIC
     Dates: start: 20161130
  4. PANTOPRAZOLE [Concomitant]
     Active Substance: PANTOPRAZOLE SODIUM
     Indication: DYSPEPSIA
     Dosage: 40 MG, UNK
     Dates: start: 20160701

REACTIONS (8)
  - Fatigue [Unknown]
  - Neoplasm progression [Recovering/Resolving]
  - Chest pain [Recovering/Resolving]
  - Dyspepsia [Unknown]
  - Nausea [Unknown]
  - Pain [Recovering/Resolving]
  - Oral pain [Unknown]
  - Dysgeusia [Unknown]
